FAERS Safety Report 7408143-5 (Version None)
Quarter: 2011Q2

REPORT INFORMATION
  Report Type: 
  Country: None (occurrence: None)
  Receive Date: 20110412
  Receipt Date: 20110330
  Transmission Date: 20111010
  Serious: Yes (Hospitalization, Other)
  Sender: FDA-Public Use
  Company Number: US-JNJFOC-20110400414

PATIENT
  Sex: Female
  Weight: 45.36 kg

DRUGS (8)
  1. DURAGESIC [Suspect]
     Indication: FIBROMYALGIA
     Route: 062
  2. DURAGESIC [Suspect]
     Route: 062
  3. DURAGESIC [Suspect]
     Route: 062
  4. FENTANYL CITRATE [Suspect]
     Indication: FIBROMYALGIA
     Route: 062
  5. KETOROLAC [Concomitant]
     Indication: MIGRAINE
     Dosage: AS NEEDED
     Route: 048
  6. DURAGESIC [Suspect]
     Route: 062
  7. NEXIUM [Concomitant]
     Indication: GASTROOESOPHAGEAL REFLUX DISEASE
     Route: 048
  8. NUCYNTA [Concomitant]
     Indication: BREAKTHROUGH PAIN
     Dosage: AS NEEDED
     Route: 048

REACTIONS (3)
  - PNEUMONIA [None]
  - DRUG INEFFECTIVE [None]
  - INTRACRANIAL ANEURYSM [None]
